FAERS Safety Report 5525593-2 (Version None)
Quarter: 2007Q4

REPORT INFORMATION
  Report Type: 
  Country: None (occurrence: None)
  Receive Date: 20071126
  Receipt Date: 20071113
  Transmission Date: 20080405
  Serious: Yes (Other)
  Sender: FDA-Public Use
  Company Number: DE-AMGEN-US252768

PATIENT
  Sex: Male

DRUGS (2)
  1. ENBREL [Suspect]
     Dosage: UNKNOWN
     Route: 058
     Dates: end: 20061101
  2. CYCLOSPORINE [Concomitant]
     Dosage: UNKNOWN
     Dates: start: 20061101

REACTIONS (1)
  - BRONCHIAL CARCINOMA [None]
